FAERS Safety Report 23465795 (Version 1)
Quarter: 2024Q1

REPORT INFORMATION
  Report Type: Spontaneous
  Country: IT (occurrence: IT)
  Receive Date: 20240201
  Receipt Date: 20240201
  Transmission Date: 20240410
  Serious: Yes (Other)
  Sender: FDA-Public Use
  Company Number: IT-ROCHE-3493689

PATIENT
  Age: 53 Year

DRUGS (1)
  1. BEVACIZUMAB [Suspect]
     Active Substance: BEVACIZUMAB
     Dosage: UNK

REACTIONS (11)
  - Hyperpyrexia [Unknown]
  - Asthenia [Unknown]
  - Pain in extremity [Unknown]
  - Bronchitis [Unknown]
  - Paraesthesia [Unknown]
  - Mucosal inflammation [Unknown]
  - Lymphadenopathy [Unknown]
  - Pain [Unknown]
  - Hepatomegaly [Unknown]
  - Oedema peripheral [Unknown]
  - Hypoaesthesia [Unknown]
